FAERS Safety Report 4682490-2 (Version None)
Quarter: 2005Q2

REPORT INFORMATION
  Report Type: 
  Country: None (occurrence: None)
  Receive Date: 20050606
  Receipt Date: 20050525
  Transmission Date: 20051028
  Serious: Yes (Hospitalization)
  Sender: FDA-Public Use
  Company Number: US-ROCHE-406038

PATIENT
  Age: 59 Year
  Sex: Male

DRUGS (8)
  1. CAPECITABINE [Suspect]
     Indication: METASTATIC RENAL CELL CARCINOMA
     Dosage: GIVEN ON DAYS 1 TO 21 OF THE CYCLE
     Route: 048
  2. GEMZAR [Suspect]
     Indication: METASTATIC RENAL CELL CARCINOMA
     Dosage: GIVEN ON DAYS 1, 8 AND 15
     Route: 042
     Dates: end: 20041230
  3. LOVENOX [Concomitant]
     Route: 058
  4. ARANESP [Concomitant]
     Dosage: TAKEN FROM UNKNOWN TO UNKNOWN (200MCG) AND FROM 30 DECEMBER TO ONGOING (300MCG)
     Route: 058
  5. PYRIDOXINE HCL [Concomitant]
     Route: 048
  6. PROTONIX [Concomitant]
     Route: 048
  7. SENNA [Concomitant]
     Indication: CONSTIPATION
     Route: 048
  8. ABH [Concomitant]
     Indication: NAUSEA
     Route: 048

REACTIONS (16)
  - BLOOD CREATININE INCREASED [None]
  - BLOOD UREA INCREASED [None]
  - CARDIAC FAILURE CONGESTIVE [None]
  - INTERSTITIAL LUNG DISEASE [None]
  - LEFT VENTRICULAR FAILURE [None]
  - MULTI-ORGAN DISORDER [None]
  - MYOCARDIAL INFARCTION [None]
  - OEDEMA PERIPHERAL [None]
  - PROTEINURIA [None]
  - RENAL IMPAIRMENT [None]
  - RESPIRATORY DISTRESS [None]
  - SINUS DISORDER [None]
  - SWELLING FACE [None]
  - THROMBOCYTOPENIA [None]
  - VENTRICULAR EXTRASYSTOLES [None]
  - WHITE BLOOD CELL COUNT DECREASED [None]
